FAERS Safety Report 15516373 (Version 1)
Quarter: 2018Q4

REPORT INFORMATION
  Report Type: Spontaneous
  Country: FR (occurrence: FR)
  Receive Date: 20181017
  Receipt Date: 20181017
  Transmission Date: 20190205
  Serious: Yes (Hospitalization)
  Sender: FDA-Public Use
  Company Number: FR-TEVA-2018-FR-965077

PATIENT
  Age: 80 Year
  Sex: Female
  Weight: 56.5 kg

DRUGS (2)
  1. LAMALINE (ACETAMINOPHEN\CAFFEINE\OPIUM) [Suspect]
     Active Substance: ACETAMINOPHEN\CAFFEINE\OPIUM
     Indication: PAIN
     Dosage: 3 DOSAGE FORMS DAILY;
     Route: 048
     Dates: end: 20180908
  2. PREDNISONE. [Suspect]
     Active Substance: PREDNISONE
     Indication: ARTHRALGIA
     Dosage: 20 MILLIGRAM DAILY;
     Route: 048
     Dates: start: 20180830, end: 20180908

REACTIONS (1)
  - Pancreatitis acute [Recovering/Resolving]

NARRATIVE: CASE EVENT DATE: 20180908
